FAERS Safety Report 4461435-4 (Version None)
Quarter: 2004Q3

REPORT INFORMATION
  Report Type: 
  Country: None (occurrence: None)
  Receive Date: 20040928
  Receipt Date: 20040922
  Transmission Date: 20050211
  Serious: Yes (Hospitalization)
  Sender: FDA-Public Use
  Company Number: ES-MERCK-0409ESP00034

PATIENT
  Sex: Female

DRUGS (2)
  1. [THERAPY UNSPECIFIED] [Concomitant]
     Route: 065
     Dates: end: 20040101
  2. FOSAMAX [Suspect]
     Route: 048
     Dates: end: 20040101

REACTIONS (4)
  - AGGRESSION [None]
  - DISORIENTATION [None]
  - PSYCHOTIC DISORDER [None]
  - PYREXIA [None]
